FAERS Safety Report 16075730 (Version 1)
Quarter: 2019Q1

REPORT INFORMATION
  Report Type: Spontaneous
  Country: US (occurrence: US)
  Receive Date: 20190315
  Receipt Date: 20190315
  Transmission Date: 20190418
  Serious: Yes (Other)
  Sender: FDA-Public Use
  Company Number: US-GLAXOSMITHKLINE-US2019046269

PATIENT
  Sex: Female

DRUGS (1)
  1. NUCALA [Suspect]
     Active Substance: MEPOLIZUMAB
     Indication: PRODUCT USED FOR UNKNOWN INDICATION
     Dosage: UNK

REACTIONS (7)
  - Mental impairment [Unknown]
  - Impaired driving ability [Unknown]
  - Product dose omission [Unknown]
  - Abdominal pain upper [Unknown]
  - Nausea [Unknown]
  - Muscle spasms [Unknown]
  - Chills [Unknown]
